FAERS Safety Report 19171330 (Version 2)
Quarter: 2021Q2

REPORT INFORMATION
  Report Type: Report from Study
  Country: KR (occurrence: KR)
  Receive Date: 20210423
  Receipt Date: 20210610
  Transmission Date: 20210717
  Serious: Yes (Hospitalization)
  Sender: FDA-Public Use
  Company Number: KR-CELLTRION INC.-2021KR005473

PATIENT

DRUGS (24)
  1. HERZUMA [Suspect]
     Active Substance: TRASTUZUMAB-PKRB
     Indication: HER2 POSITIVE GASTRIC CANCER
     Dosage: QWEEK
     Route: 042
     Dates: start: 20210330
  2. WINUF [Concomitant]
     Indication: SUPPORTIVE CARE
     Dosage: 1435 ML, QOD
     Route: 042
     Dates: start: 20210416, end: 20210428
  3. GASTER [Concomitant]
     Active Substance: FAMOTIDINE
     Indication: GASTRITIS PROPHYLAXIS
     Dosage: 20 MG, QD
     Route: 042
     Dates: start: 20210416
  4. GASOCOL [Concomitant]
     Indication: PREMEDICATION
     Dosage: 10 ML ONCE
     Route: 048
     Dates: start: 20210419, end: 20210419
  5. HERZUMA [Suspect]
     Active Substance: TRASTUZUMAB-PKRB
     Indication: METASTATIC GASTRIC CANCER
     Dosage: 232 MG, 1/WEEK
     Route: 042
     Dates: start: 20210205, end: 20210205
  6. TRIDOL [Concomitant]
     Active Substance: TRAMADOL HYDROCHLORIDE
     Indication: OESOPHAGOGASTRODUODENOSCOPY
  7. CEFTRIAXONE. [Concomitant]
     Active Substance: CEFTRIAXONE
     Indication: INFECTION PROPHYLAXIS
     Dosage: 2 G, QD
     Route: 042
     Dates: start: 20210421, end: 20210430
  8. METRYNAL [Concomitant]
     Indication: INFECTION PROPHYLAXIS
     Dosage: 500 MG, TID
     Route: 042
     Dates: start: 20210421, end: 20210430
  9. ALBUMIN [Concomitant]
     Active Substance: ALBUMIN HUMAN
     Indication: PROPHYLAXIS
  10. LASIX [Concomitant]
     Active Substance: FUROSEMIDE
     Indication: OEDEMA
     Dosage: 20 MG ONCE
     Route: 042
     Dates: start: 20210423, end: 20210423
  11. HERZUMA [Suspect]
     Active Substance: TRASTUZUMAB-PKRB
     Dosage: QWEEK
     Route: 042
     Dates: start: 20210406
  12. HERZUMA [Suspect]
     Active Substance: TRASTUZUMAB-PKRB
     Dosage: 102 MG, 1/WEEK
     Route: 042
     Dates: start: 20210413, end: 20210413
  13. TRIDOL [Concomitant]
     Active Substance: TRAMADOL HYDROCHLORIDE
     Indication: PREMEDICATION
     Dosage: 50 MG ONCE
     Route: 042
     Dates: start: 20210419, end: 20210419
  14. DENOGAN [Concomitant]
     Active Substance: PROPACETAMOL HYDROCHLORIDE
     Indication: INFECTION PROPHYLAXIS
     Dosage: 1000 MG, QD
     Route: 042
     Dates: start: 20210421, end: 20210429
  15. RAMUCIRUMAB [Suspect]
     Active Substance: RAMUCIRUMAB
     Indication: ADENOCARCINOMA GASTRIC
     Dosage: 464 MG
     Route: 042
     Dates: start: 20210205, end: 20210223
  16. BROPIUM [Concomitant]
     Indication: PREMEDICATION
     Dosage: 10 MG, ONCE
     Route: 030
     Dates: start: 20210419, end: 20210419
  17. LASIX [Concomitant]
     Active Substance: FUROSEMIDE
     Indication: PROPHYLAXIS
  18. HERZUMA [Suspect]
     Active Substance: TRASTUZUMAB-PKRB
     Dosage: 116 MG, 1/WEEK
     Route: 042
     Dates: start: 20210215, end: 20210406
  19. GENEXOL [PACLITAXEL] [Suspect]
     Active Substance: PACLITAXEL
     Dosage: 108.5 MG
     Route: 042
     Dates: start: 20210413, end: 20210413
  20. BROPIUM [Concomitant]
     Indication: OESOPHAGOGASTRODUODENOSCOPY
  21. ALBUMIN [Concomitant]
     Active Substance: ALBUMIN HUMAN
     Indication: OEDEMA
     Dosage: 100 ML ONCE
     Route: 042
     Dates: start: 20210423, end: 20210423
  22. GENEXOL [PACLITAXEL] [Suspect]
     Active Substance: PACLITAXEL
     Indication: ADENOCARCINOMA GASTRIC
     Dosage: 132 MG
     Route: 042
     Dates: start: 20210205, end: 20210316
  23. GENEXOL [PACLITAXEL] [Suspect]
     Active Substance: PACLITAXEL
     Dosage: 115.5 MG
     Route: 042
     Dates: start: 20210330, end: 20210330
  24. GASOCOL [Concomitant]
     Indication: OESOPHAGOGASTRODUODENOSCOPY

REACTIONS (1)
  - Gastric haemorrhage [Recovered/Resolved]

NARRATIVE: CASE EVENT DATE: 20210331
